FAERS Safety Report 9451491 (Version 1)
Quarter: 2013Q3

REPORT INFORMATION
  Report Type: Spontaneous
  Country: US (occurrence: US)
  Receive Date: 20130810
  Receipt Date: 20130810
  Transmission Date: 20140515
  Serious: No
  Sender: FDA-Public Use
  Company Number: US-009507513-1308USA000084

PATIENT
  Age: 40 Year
  Sex: Male

DRUGS (1)
  1. PROVENTIL [Suspect]
     Dosage: UNK, 1 STANDARD DOSE OF 6.7
     Route: 055

REACTIONS (4)
  - Product quality issue [Unknown]
  - Underdose [Unknown]
  - Drug dose omission [Unknown]
  - No adverse event [Unknown]
